FAERS Safety Report 8302257-3 (Version None)
Quarter: 2012Q2

REPORT INFORMATION
  Report Type: 
  Country: None (occurrence: None)
  Receive Date: 20120420
  Receipt Date: 20120413
  Transmission Date: 20120825
  Serious: Yes (Death, Life-Threatening, Other)
  Sender: FDA-Public Use
  Company Number: IL-ROXANE LABORATORIES, INC.-2012-RO-01063RO

PATIENT
  Age: 78 Year
  Sex: Female

DRUGS (6)
  1. PREDNISOLONE [Suspect]
     Indication: RHEUMATOID ARTHRITIS
  2. GOLD SALTS [Suspect]
     Indication: RHEUMATOID ARTHRITIS
  3. VINBLASTINE SULFATE [Suspect]
     Indication: KAPOSI'S SARCOMA
  4. METHOTREXATE [Suspect]
     Indication: RHEUMATOID ARTHRITIS
  5. TAMOXIFEN CITRATE [Suspect]
     Indication: BREAST CANCER STAGE II
  6. TETRACYCLINE [Suspect]
     Indication: RHEUMATOID ARTHRITIS

REACTIONS (4)
  - LUNG DISORDER [None]
  - BREAST CANCER STAGE II [None]
  - METASTASES TO LUNG [None]
  - KAPOSI'S SARCOMA [None]
